FAERS Safety Report 20711638 (Version 1)
Quarter: 2022Q2

REPORT INFORMATION
  Report Type: Spontaneous
  Country: US (occurrence: US)
  Receive Date: 20220414
  Receipt Date: 20220414
  Transmission Date: 20220721
  Serious: No
  Sender: FDA-Public Use
  Company Number: US-PFIZER INC-202101013249

PATIENT
  Age: 76 Year
  Sex: Male
  Weight: 83.91 kg

DRUGS (6)
  1. CHANTIX [Suspect]
     Active Substance: VARENICLINE TARTRATE
     Indication: Pneumonia
     Dosage: 0.5 MG (0.5MG FIRST FOR 3 DAYS/0.5MG UNTIL DAY 7)
     Dates: start: 20210701
  2. CHANTIX [Suspect]
     Active Substance: VARENICLINE TARTRATE
     Indication: Smoking cessation therapy
     Dosage: 1 MG (1MG IN THE MORNING AND EVENING.)
     Dates: start: 202107
  3. BAYER ASPIRIN [Concomitant]
     Active Substance: ASPIRIN
     Indication: Cardiac disorder
     Dosage: 325 MG, 1X/DAY (HE TAKES ONE IN THE MORNING)
     Dates: end: 20210719
  4. PLAVIX [Concomitant]
     Active Substance: CLOPIDOGREL BISULFATE
     Indication: Cardiac disorder
     Dosage: 75 MG, CYCLIC (HE ONLY TAKES IT 3 TIMES A WEEK. HE TAKES 75MG ON MONDAY, WEDNESDAY, AND FRIDAY.)
     Dates: start: 2015
  5. PLAVIX [Concomitant]
     Active Substance: CLOPIDOGREL BISULFATE
     Indication: Vascular graft
  6. OMEGA 3 FISH OIL [FISH OIL] [Concomitant]
     Dosage: UNK

REACTIONS (2)
  - Asthenia [Unknown]
  - Condition aggravated [Unknown]
